FAERS Safety Report 9747584 (Version 4)
Quarter: 2014Q1

REPORT INFORMATION
  Report Type: Spontaneous
  Country: US (occurrence: US)
  Receive Date: 20131212
  Receipt Date: 20140206
  Transmission Date: 20141002
  Serious: Yes (Other)
  Sender: FDA-Public Use
  Company Number: US-JNJFOC-20131203526

PATIENT
  Sex: 0

DRUGS (2)
  1. STELARA [Suspect]
     Indication: PSORIASIS
     Route: 058
  2. REMICADE [Suspect]
     Indication: PSORIASIS
     Route: 065

REACTIONS (1)
  - Skin cancer [Unknown]
